FAERS Safety Report 7918674-7 (Version None)
Quarter: 2011Q4

REPORT INFORMATION
  Report Type: 
  Country: None (occurrence: None)
  Receive Date: 20111116
  Receipt Date: 20111107
  Transmission Date: 20120403
  Serious: Yes (Other)
  Sender: FDA-Public Use
  Company Number: CHPA2011US015565

PATIENT
  Age: 52 Year
  Sex: Female

DRUGS (2)
  1. TRANSDERM SCOP [Suspect]
     Dosage: 2 DF, UNK
     Route: 062
     Dates: start: 20111001
  2. TRANSDERM SCOP [Suspect]
     Indication: PULMONARY CONGESTION
     Dosage: 1 DF, UNK
     Route: 062
     Dates: end: 20111001

REACTIONS (4)
  - THERAPEUTIC RESPONSE UNEXPECTED [None]
  - OVERDOSE [None]
  - PNEUMONIA ASPIRATION [None]
  - OFF LABEL USE [None]
